FAERS Safety Report 16170884 (Version 1)
Quarter: 2019Q2

REPORT INFORMATION
  Report Type: Spontaneous
  Country: GB (occurrence: GB)
  Receive Date: 20190408
  Receipt Date: 20190408
  Transmission Date: 20190711
  Serious: Yes (Disabling)
  Sender: FDA-Public Use
  Company Number: GB-MYLANLABS-2019M1031693

PATIENT
  Age: 71 Year
  Sex: Male
  Weight: 92.07 kg

DRUGS (5)
  1. ECHINACEA PURPUREA [Concomitant]
     Active Substance: ECHINACEA PURPUREA
     Dosage: 2 DOSAGE FORM, QD
  2. ACETYLSALICYLIC ACID [Concomitant]
     Active Substance: ASPIRIN
     Dosage: 75 MILLIGRAM, QD
  3. THIAMINE HYDROCHLORIDE. [Concomitant]
     Active Substance: THIAMINE HYDROCHLORIDE
     Dosage: DIVIDED 100MG DOSES
  4. ATORVASTATIN [Suspect]
     Active Substance: ATORVASTATIN
     Indication: HYPERCHOLESTEROLAEMIA
     Dosage: 20 MILLIGRAM
     Route: 048
     Dates: start: 20180424, end: 20180827
  5. PARACETAMOL [Concomitant]
     Active Substance: ACETAMINOPHEN
     Dosage: 4000 MILLIGRAM, QD
     Dates: end: 201806

REACTIONS (3)
  - Arthralgia [Recovered/Resolved with Sequelae]
  - Myalgia [Recovered/Resolved with Sequelae]
  - Muscle atrophy [Unknown]

NARRATIVE: CASE EVENT DATE: 20180510
